FAERS Safety Report 7627408-5 (Version None)
Quarter: 2011Q3

REPORT INFORMATION
  Report Type: 
  Country: None (occurrence: None)
  Receive Date: 20110721
  Receipt Date: 20110719
  Transmission Date: 20111222
  Serious: No
  Sender: FDA-Public Use
  Company Number: US-PFIZER INC-2011110592

PATIENT
  Sex: Female
  Weight: 82 kg

DRUGS (4)
  1. CHANTIX [Suspect]
     Indication: SMOKING CESSATION THERAPY
     Dosage: 0.5 MG, 1X/DAY
     Route: 048
     Dates: start: 20101220, end: 20101222
  2. CHANTIX [Suspect]
     Dosage: UNK
     Route: 048
  3. CHANTIX [Suspect]
     Dosage: UNK
     Route: 048
  4. NAPROXEN (ALEVE) [Suspect]
     Dosage: UNK

REACTIONS (2)
  - VOMITING [None]
  - NAUSEA [None]
